FAERS Safety Report 14519817 (Version 2)
Quarter: 2018Q1

REPORT INFORMATION
  Report Type: Spontaneous
  Country: US (occurrence: US)
  Receive Date: 20180212
  Receipt Date: 20180215
  Transmission Date: 20180509
  Serious: No
  Sender: FDA-Public Use
  Company Number: US-BAYER-2018-025890

PATIENT
  Sex: Female

DRUGS (1)
  1. CLIMARA PRO [Suspect]
     Active Substance: ESTRADIOL\LEVONORGESTREL
     Indication: MENOPAUSE
     Dosage: UNK
     Route: 062
     Dates: start: 201703

REACTIONS (4)
  - Product physical issue [Not Recovered/Not Resolved]
  - Device use error [Not Recovered/Not Resolved]
  - Incorrect drug administration duration [None]
  - Device breakage [Not Recovered/Not Resolved]
